FAERS Safety Report 5117007-1 (Version None)
Quarter: 2006Q3

REPORT INFORMATION
  Report Type: 
  Country: None (occurrence: None)
  Receive Date: 20060918
  Receipt Date: 20060911
  Transmission Date: 20061208
  Serious: Yes (Other)
  Sender: FDA-Public Use
  Company Number: GBWYE852705SEP05

PATIENT
  Age: 31 Year
  Sex: Male

DRUGS (2)
  1. REFACTO                             (MOROCTOCOG ALFA) [Suspect]
     Indication: FACTOR VIII DEFICIENCY
     Dosage: 3000IU (ON DEMAND) INTRAVENOUS
     Route: 042
     Dates: start: 20060511
  2. ARCOXIA [Concomitant]

REACTIONS (2)
  - DRUG EFFECT DECREASED [None]
  - FACTOR VIII INHIBITION [None]
